FAERS Safety Report 12781136 (Version 1)
Quarter: 2016Q3

REPORT INFORMATION
  Report Type: Spontaneous
  Country: FR (occurrence: FR)
  Receive Date: 20160926
  Receipt Date: 20160926
  Transmission Date: 20161109
  Serious: Yes (Hospitalization)
  Sender: FDA-Public Use
  Company Number: FR-LABORATOIRE HRA PHARMA-1057708

PATIENT
  Age: 70 Year
  Sex: Female

DRUGS (14)
  1. BISOPROLOL FUMARATE. [Concomitant]
     Active Substance: BISOPROLOL FUMARATE
  2. DOLIPRANE [Concomitant]
     Active Substance: ACETAMINOPHEN
  3. COLECALCIFEROL [Concomitant]
     Active Substance: CHOLECALCIFEROL
  4. PREVISCAN (FLUINDIONE) [Concomitant]
     Active Substance: FLUINDIONE
  5. METOPIRONE [Suspect]
     Active Substance: METYRAPONE
     Route: 048
     Dates: start: 20160513
  6. HYDROCORTISONE. [Concomitant]
     Active Substance: HYDROCORTISONE
     Dates: start: 20160513, end: 20160810
  7. FUROSEMIDE. [Concomitant]
     Active Substance: FUROSEMIDE
  8. LIDOCAINE. [Concomitant]
     Active Substance: LIDOCAINE
  9. LAMOTRIGINE. [Concomitant]
     Active Substance: LAMOTRIGINE
  10. POTASSIUM CHLORIDE. [Concomitant]
     Active Substance: POTASSIUM CHLORIDE
  11. TERCIAN (CYAMEMAZINE TARTRATE) [Concomitant]
  12. SPIRONOLACTONE. [Concomitant]
     Active Substance: SPIRONOLACTONE
     Dates: start: 20160513, end: 20160810
  13. ESOMEPRAZOLE MAGNESIUM. [Concomitant]
     Active Substance: ESOMEPRAZOLE MAGNESIUM
  14. TERBUTALINE [Concomitant]
     Active Substance: TERBUTALINE

REACTIONS (4)
  - Alopecia [None]
  - Nausea [None]
  - Decreased appetite [None]
  - Pruritus generalised [None]

NARRATIVE: CASE EVENT DATE: 20160720
